FAERS Safety Report 17681268 (Version 1)
Quarter: 2020Q2

REPORT INFORMATION
  Report Type: Spontaneous
  Country: US (occurrence: US)
  Receive Date: 20200417
  Receipt Date: 20200417
  Transmission Date: 20200714
  Serious: Yes (Other)
  Sender: FDA-Public Use
  Company Number: US-JNJFOC-20200415911

PATIENT
  Sex: Female
  Weight: 61.29 kg

DRUGS (4)
  1. RIVAROXABAN [Suspect]
     Active Substance: RIVAROXABAN
     Indication: CEREBROVASCULAR ACCIDENT PROPHYLAXIS
  2. LASIX [Concomitant]
     Active Substance: FUROSEMIDE
  3. RIVAROXABAN [Suspect]
     Active Substance: RIVAROXABAN
     Indication: ATRIAL FIBRILLATION
     Dosage: NDC : 5045857989
     Route: 048
     Dates: start: 2014
  4. ASPRIN [Concomitant]
     Active Substance: ASPIRIN

REACTIONS (2)
  - Haemorrhage [Unknown]
  - Contusion [Unknown]
